FAERS Safety Report 6139612-6 (Version None)
Quarter: 2009Q1

REPORT INFORMATION
  Report Type: 
  Country: None (occurrence: None)
  Receive Date: 20090330
  Receipt Date: 20080804
  Transmission Date: 20090719
  Serious: Yes (Other)
  Sender: FDA-Public Use
  Company Number: 172533USA

PATIENT
  Age: 66 Year
  Sex: Female

DRUGS (10)
  1. AMOXICILLIN AND CLAVULANATE POTASSIUM [Suspect]
     Indication: INFECTION
     Dosage: 875MG / 125MG (2 IN 1 D), ORAL
     Route: 048
     Dates: start: 20080519, end: 20080527
  2. LEVOTHYROXINE SODIUM [Concomitant]
  3. VALACYCLOVIR [Concomitant]
  4. VALSARTAN [Concomitant]
  5. PANTOPRAZOLE SODIUM [Concomitant]
  6. ACETYLSALICYLIC ACID [Concomitant]
  7. CALCIUM WITH VITAMIN D [Concomitant]
  8. MULTI-VITAMIN [Concomitant]
  9. GLUCOSAMINE W/METHYLSULFONYLMETHANE [Concomitant]
  10. HYDROCHLOROTHIAZIDE [Concomitant]

REACTIONS (1)
  - LIVER FUNCTION TEST ABNORMAL [None]
